FAERS Safety Report 21549205 (Version 2)
Quarter: 2022Q4

REPORT INFORMATION
  Report Type: Spontaneous
  Country: US (occurrence: US)
  Receive Date: 20221103
  Receipt Date: 20221128
  Transmission Date: 20230112
  Serious: No
  Sender: FDA-Public Use
  Company Number: US-PFIZER INC-2020298577

PATIENT
  Age: 71 Year
  Sex: Female

DRUGS (1)
  1. EUCRISA [Suspect]
     Active Substance: CRISABOROLE
     Indication: Dermatitis
     Dosage: UNK, 2X/DAY (APPLY TOPICALLY 2 TIMES A DAY TO AFFECTED AREA)
     Route: 061

REACTIONS (3)
  - Rash [Unknown]
  - Off label use [Unknown]
  - Drug effective for unapproved indication [Unknown]
